FAERS Safety Report 7831552-7 (Version None)
Quarter: 2011Q4

REPORT INFORMATION
  Report Type: 
  Country: None (occurrence: None)
  Receive Date: 20111021
  Receipt Date: 20111014
  Transmission Date: 20120403
  Serious: Yes (Other)
  Sender: FDA-Public Use
  Company Number: CHPA2011US13930

PATIENT
  Age: 65 Year
  Sex: Female

DRUGS (2)
  1. GAS-X EXTSTR CHEW TABS PEPPERMINT CREME [Suspect]
     Indication: GASTRITIS
     Dosage: 250 MG, ONCE/SINGLE
     Route: 048
     Dates: start: 20111010, end: 20111010
  2. GAS-X EXTSTR CHEW TABS PEPPERMINT CREME [Suspect]
     Dosage: 1-2 TABLETS PRN MOST OF MY LIFE
     Route: 048

REACTIONS (7)
  - GASTRITIS [None]
  - COELIAC DISEASE [None]
  - THERAPEUTIC RESPONSE UNEXPECTED [None]
  - ABDOMINAL DISCOMFORT [None]
  - NAUSEA [None]
  - MUSCLE SPASMS [None]
  - OFF LABEL USE [None]
